FAERS Safety Report 7400398-6 (Version None)
Quarter: 2011Q2

REPORT INFORMATION
  Report Type: 
  Country: None (occurrence: None)
  Receive Date: 20110407
  Receipt Date: 20110331
  Transmission Date: 20111010
  Serious: Yes (Life-Threatening, Hospitalization)
  Sender: FDA-Public Use
  Company Number: FR-JNJFOC-20110312594

PATIENT
  Sex: Male
  Weight: 50 kg

DRUGS (5)
  1. VALIUM [Interacting]
     Indication: AGGRESSION
     Route: 048
  2. TERCIAN [Interacting]
     Indication: AGGRESSION
     Route: 048
  3. TERCIAN [Interacting]
     Route: 065
  4. RISPERDAL [Suspect]
     Indication: AGGRESSION
     Route: 048
  5. DEPAMIDE [Interacting]
     Indication: AGGRESSION
     Dosage: FOR 1 YEAR
     Route: 048

REACTIONS (5)
  - AGGRESSION [None]
  - MALAISE [None]
  - SOMNOLENCE [None]
  - BRADYCARDIA [None]
  - DRUG INTERACTION [None]
